FAERS Safety Report 8361470-X (Version None)
Quarter: 2012Q2

REPORT INFORMATION
  Report Type: 
  Country: None (occurrence: None)
  Receive Date: 20120515
  Receipt Date: 20120502
  Transmission Date: 20120825
  Serious: Yes (Other)
  Sender: FDA-Public Use
  Company Number: CH-TEVA-337012ISR

PATIENT
  Age: 72 Year
  Sex: Male

DRUGS (10)
  1. CO-AMOXI - MEPHA 1000 LACTAB [Suspect]
     Indication: PHARYNGITIS
     Dosage: 1100 MILLIGRAM;
     Route: 042
     Dates: start: 20111101, end: 20111104
  2. RAMIPRIL [Concomitant]
     Indication: PHARYNGITIS
     Dosage: 2.5 MILLIGRAM;
     Route: 048
  3. TORSEMIDE [Concomitant]
     Indication: PHARYNGITIS
     Dosage: 10 MILLIGRAM;
     Route: 048
  4. PANTOPRAZOLE [Concomitant]
     Indication: PHARYNGITIS
     Dosage: 40 MILLIGRAM;
     Route: 048
  5. CALCORT [Concomitant]
     Indication: PHARYNGITIS
     Dosage: 12 MILLIGRAM;
  6. ELTROXIN IF [Concomitant]
     Indication: PHARYNGITIS
     Dosage: .05 MILLIGRAM;
     Route: 048
  7. FENTANYL-100 [Concomitant]
     Indication: PHARYNGITIS
     Route: 062
  8. METOPROLOL TARTRATE AND HYDROCHLOROTHIAZIDE [Concomitant]
     Indication: PHARYNGITIS
     Dosage: 50 MILLIGRAM;
     Route: 048
  9. HALDOL [Concomitant]
     Indication: PHARYNGITIS
     Dosage: 30 GTT; DROPS
     Route: 048
  10. ATORVASTATIN CALCIUM [Concomitant]
     Indication: PHARYNGITIS
     Dosage: 20 MILLIGRAM;
     Route: 048

REACTIONS (2)
  - CONFUSIONAL STATE [None]
  - MUSCLE SPASMS [None]
